FAERS Safety Report 15232683 (Version 1)
Quarter: 2018Q3

REPORT INFORMATION
  Report Type: Spontaneous
  Country: US (occurrence: US)
  Receive Date: 20180802
  Receipt Date: 20180802
  Transmission Date: 20181010
  Serious: Yes (Other)
  Sender: FDA-Public Use
  Company Number: US-BAYER-2018-140545

PATIENT
  Sex: Female

DRUGS (1)
  1. MIRENA [Suspect]
     Active Substance: LEVONORGESTREL
     Indication: CONTRACEPTION
     Dosage: 20 MCG/24HR, CONT
     Route: 015
     Dates: start: 2015, end: 201807

REACTIONS (12)
  - Fatigue [Recovered/Resolved]
  - Pulmonary hypertension [Recovering/Resolving]
  - Vision blurred [Recovering/Resolving]
  - Palpitations [Recovered/Resolved]
  - Genital haemorrhage [Recovering/Resolving]
  - Cold sweat [Recovered/Resolved]
  - Autoimmune disorder [Recovering/Resolving]
  - Cardiovascular disorder [Recovering/Resolving]
  - Hypoaesthesia [Recovering/Resolving]
  - Exercise tolerance decreased [Recovering/Resolving]
  - Malaise [Recovering/Resolving]
  - Anxiety [Recovered/Resolved]
